FAERS Safety Report 8150081-7 (Version None)
Quarter: 2012Q1

REPORT INFORMATION
  Report Type: 
  Country: None (occurrence: None)
  Receive Date: 20120220
  Receipt Date: 20120209
  Transmission Date: 20120608
  Serious: Yes (Other)
  Sender: FDA-Public Use
  Company Number: US-BIOGENIDEC-2011BI014960

PATIENT
  Age: 31 Year
  Sex: Female

DRUGS (9)
  1. PROCTOFOAM [Concomitant]
  2. ADDERALL 5 [Concomitant]
     Dates: end: 20110401
  3. FERRALET [Concomitant]
     Dates: start: 20110501
  4. ACETAMINOPHEN [Concomitant]
     Route: 048
  5. ARMODAFINIL [Concomitant]
  6. TYSABRI [Suspect]
     Indication: MULTIPLE SCLEROSIS
     Route: 042
     Dates: start: 20090723, end: 20110404
  7. SOLU-MEDROL [Concomitant]
  8. LOVENOX [Concomitant]
     Dates: start: 20110501
  9. BIFERA [Concomitant]

REACTIONS (2)
  - PREGNANCY [None]
  - PRE-ECLAMPSIA [None]
